FAERS Safety Report 7005208 (Version 5)
Quarter: 2012Q4

REPORT INFORMATION
  Report Type: 
  Country: CA (occurrence: CA)
  Receive Date: 20090528
  Receipt Date: 20121102
  Transmission Date: 20130627
  Serious: Yes (Other)
  Sender: FDA-Public Use
  Company Number: PHHY2009CA18328

PATIENT
  Sex: Male

DRUGS (1)
  1. SANDOSTATIN LAR [Suspect]
     Indication: ACROMEGALY
     Dosage: 30 mg every 4 weeks
     Route: 030
     Dates: start: 20070510, end: 20071025

REACTIONS (2)
  - Blood pressure increased [Unknown]
  - Heart rate increased [Unknown]
